FAERS Safety Report 9449293 (Version 2)
Quarter: 2014Q2

REPORT INFORMATION
  Report Type: Spontaneous
  Country: IT (occurrence: IT)
  Receive Date: 20130808
  Receipt Date: 20140403
  Transmission Date: 20141212
  Serious: Yes (Other)
  Sender: FDA-Public Use
  Company Number: IT-PFIZER INC-2013227349

PATIENT
  Age: 78 Year
  Sex: Female

DRUGS (8)
  1. MEDROL [Suspect]
     Indication: RHEUMATOID ARTHRITIS
     Dosage: UNK
     Route: 048
     Dates: start: 20110101
  2. DEPALGOS [Suspect]
     Indication: RHEUMATOID ARTHRITIS
     Dosage: UNK
     Route: 048
     Dates: start: 20130101
  3. ALENDROS [Concomitant]
     Indication: OSTEOPOROSIS
     Route: 048
  4. CLEXANE [Concomitant]
     Indication: DEEP VEIN THROMBOSIS
     Dosage: 8000 IU, UNK
     Route: 058
     Dates: start: 20130528, end: 20130603
  5. ARICEPT [Concomitant]
     Indication: DEMENTIA ALZHEIMER^S TYPE
     Route: 048
  6. REUMAFLEX [Concomitant]
     Indication: RHEUMATOID ARTHRITIS
  7. COLECALCIFEROL [Concomitant]
  8. AGOMELATINE [Concomitant]

REACTIONS (4)
  - Dermatitis bullous [Recovered/Resolved]
  - Gravitational oedema [Recovered/Resolved]
  - Skin atrophy [Recovered/Resolved]
  - Skin fragility [Recovered/Resolved]
